FAERS Safety Report 20454702 (Version 1)
Quarter: 2022Q1

REPORT INFORMATION
  Report Type: Spontaneous
  Country: US (occurrence: None)
  Receive Date: 20220209
  Receipt Date: 20220209
  Transmission Date: 20220423
  Serious: Yes (Hospitalization)
  Sender: FDA-Public Use
  Company Number: None

PATIENT
  Age: 78 Year
  Sex: Female
  Weight: 67.5 kg

DRUGS (10)
  1. GEMCITABINE [Suspect]
     Active Substance: GEMCITABINE
     Indication: Bladder cancer
     Dosage: OTHER ROUTE : INSTILLED INTO BLADDER;?
     Route: 050
     Dates: start: 20211202, end: 20211202
  2. GABAPENTIN [Concomitant]
     Active Substance: GABAPENTIN
  3. LISINOPRIL [Concomitant]
     Active Substance: LISINOPRIL
  4. HYDROCHLOROTHIAZIDE [Concomitant]
     Active Substance: HYDROCHLOROTHIAZIDE
  5. JANUVIA [Concomitant]
     Active Substance: SITAGLIPTIN PHOSPHATE
  6. AMLODIPINE BESYLATE [Concomitant]
     Active Substance: AMLODIPINE BESYLATE
  7. SIMVASTATIN [Concomitant]
     Active Substance: SIMVASTATIN
  8. LOW-DOSE ASPIRIN [Concomitant]
     Active Substance: ASPIRIN
  9. VITAMIN B12 [Concomitant]
     Active Substance: CYANOCOBALAMIN
  10. VITAMIN D3 [Concomitant]
     Active Substance: CHOLECALCIFEROL

REACTIONS (8)
  - Nausea [None]
  - Retching [None]
  - Diarrhoea [None]
  - Alopecia [None]
  - Dehydration [None]
  - Renal injury [None]
  - Hypophagia [None]
  - Systemic leakage [None]

NARRATIVE: CASE EVENT DATE: 20211202
